FAERS Safety Report 7487007-5 (Version None)
Quarter: 2011Q2

REPORT INFORMATION
  Report Type: 
  Country: None (occurrence: None)
  Receive Date: 20110518
  Receipt Date: 20110504
  Transmission Date: 20111010
  Serious: Yes (Hospitalization)
  Sender: FDA-Public Use
  Company Number: DE-MYLANLABS-2011S1006897

PATIENT
  Age: 89 Year
  Sex: Female
  Weight: 50 kg

DRUGS (11)
  1. DEKRISTOL [Concomitant]
     Indication: OSTEOPOROSIS
     Dosage: 1 TABLETTE ALLE 14 TAGE
     Route: 048
  2. AMLODIPINE BESYLATE [Concomitant]
     Indication: HYPERTENSION
     Route: 048
  3. ACETYL SALICYLIC ACID USP BAT [Concomitant]
     Indication: ISCHAEMIC HEART DISEASE PROPHYLAXIS
     Route: 048
  4. MACROGOL [Concomitant]
     Indication: CONSTIPATION
     Route: 048
  5. OXYCODONE HCL [Suspect]
     Indication: PAIN
     Route: 048
     Dates: start: 19990101, end: 20110120
  6. BISOPROLOL FUMARATE [Suspect]
     Indication: HYPERTENSION
     Route: 048
  7. MICTONORM [Suspect]
     Indication: INCONTINENCE
     Route: 048
  8. METAMIZOLE [Concomitant]
     Indication: PAIN
     Route: 048
  9. MIRTAZAPIN [Concomitant]
     Indication: DEPRESSION
     Route: 048
  10. QUINAPRIL [Suspect]
     Indication: HYPERTENSION
     Route: 048
  11. MOXONIDINE [Suspect]
     Indication: HYPERTENSION
     Route: 048

REACTIONS (1)
  - SUBILEUS [None]
